FAERS Safety Report 7978359-8 (Version None)
Quarter: 2011Q4

REPORT INFORMATION
  Report Type: 
  Country: None (occurrence: None)
  Receive Date: 20111214
  Receipt Date: 20111209
  Transmission Date: 20120403
  Serious: Yes (Hospitalization, Congenital Anomaly, Other)
  Sender: FDA-Public Use
  Company Number: US-PFIZER INC-2010109636

PATIENT
  Sex: Female
  Weight: 3 kg

DRUGS (4)
  1. ZOLOFT [Suspect]
     Indication: DEPRESSED MOOD
     Dosage: UNK
     Route: 064
  2. SYNTHROID [Concomitant]
     Indication: THYROID DISORDER
     Dosage: 50 MG, 1X/DAY
     Route: 064
  3. ETHINYL ESTRADIOL [Concomitant]
     Route: 064
  4. ATENOLOL [Concomitant]
     Indication: HEART RATE INCREASED
     Dosage: 50 MG, UNK
     Route: 064

REACTIONS (18)
  - PATENT DUCTUS ARTERIOSUS [None]
  - NEUTROPENIA [None]
  - ATRIAL SEPTAL DEFECT [None]
  - BRONCHITIS [None]
  - UPPER RESPIRATORY TRACT INFECTION [None]
  - CARDIAC FAILURE CONGESTIVE [None]
  - MARFAN'S SYNDROME [None]
  - SEASONAL ALLERGY [None]
  - ASTHMA [None]
  - VENTRICULAR SEPTAL DEFECT [None]
  - JAUNDICE NEONATAL [None]
  - DEAFNESS NEUROSENSORY [None]
  - OSTEOPENIA [None]
  - OTITIS MEDIA [None]
  - FOETAL EXPOSURE DURING PREGNANCY [None]
  - SPEECH DISORDER DEVELOPMENTAL [None]
  - GROWTH RETARDATION [None]
  - FOOT DEFORMITY [None]
